FAERS Safety Report 20569792 (Version 4)
Quarter: 2022Q2

REPORT INFORMATION
  Report Type: Report from Study
  Country: US (occurrence: US)
  Receive Date: 20220309
  Receipt Date: 20220526
  Transmission Date: 20220720
  Serious: No
  Sender: FDA-Public Use
  Company Number: US-NOVARTISTESTPH-NVSC2022US054430

PATIENT
  Age: 41 Year
  Sex: Female

DRUGS (3)
  1. MAYZENT [Suspect]
     Active Substance: SIPONIMOD
     Indication: Relapsing-remitting multiple sclerosis
     Dosage: 2 MG, QD
     Route: 048
     Dates: start: 20220304
  2. MAYZENT [Suspect]
     Active Substance: SIPONIMOD
     Indication: Clinically isolated syndrome
  3. MAYZENT [Suspect]
     Active Substance: SIPONIMOD
     Indication: Secondary progressive multiple sclerosis

REACTIONS (7)
  - Hypoaesthesia [Unknown]
  - Intervertebral disc protrusion [Unknown]
  - Dysphagia [Unknown]
  - Feeling abnormal [Unknown]
  - Back pain [Unknown]
  - Grip strength decreased [Unknown]
  - Tremor [Unknown]

NARRATIVE: CASE EVENT DATE: 20220304
